FAERS Safety Report 14782778 (Version 2)
Quarter: 2018Q2

REPORT INFORMATION
  Report Type: Spontaneous
  Country: FI (occurrence: FI)
  Receive Date: 20180420
  Receipt Date: 20180619
  Transmission Date: 20180711
  Serious: Yes (Other)
  Sender: FDA-Public Use
  Company Number: FI-ASTRAZENECA-2018SE47888

PATIENT
  Age: 19 Year
  Sex: Female

DRUGS (6)
  1. KETIPINOR [Suspect]
     Active Substance: QUETIAPINE FUMARATE
     Indication: PHOBIA
     Dosage: 25-50 MG UNKNOWN
     Route: 048
     Dates: start: 201709
  2. KETIPINOR [Suspect]
     Active Substance: QUETIAPINE FUMARATE
     Indication: DEPRESSION
     Dosage: 25-50 MG UNKNOWN
     Route: 048
     Dates: start: 201709
  3. CIPRALEX [Concomitant]
     Active Substance: ESCITALOPRAM OXALATE
     Indication: DEPRESSION
  4. KETIPINOR [Suspect]
     Active Substance: QUETIAPINE FUMARATE
     Indication: DEPRESSION
     Dosage: 200.0MG UNKNOWN
     Route: 048
  5. CIPRALEX [Concomitant]
     Active Substance: ESCITALOPRAM OXALATE
     Indication: PHOBIA
  6. KETIPINOR [Suspect]
     Active Substance: QUETIAPINE FUMARATE
     Indication: PHOBIA
     Dosage: 200.0MG UNKNOWN
     Route: 048

REACTIONS (3)
  - Myoclonus [Not Recovered/Not Resolved]
  - Diplopia [Unknown]
  - Headache [Unknown]

NARRATIVE: CASE EVENT DATE: 2017
